FAERS Safety Report 9214579 (Version 1)
Quarter: 2013Q2

REPORT INFORMATION
  Report Type: Spontaneous
  Country: AR (occurrence: AR)
  Receive Date: 20130405
  Receipt Date: 20130405
  Transmission Date: 20140414
  Serious: Yes (Other)
  Sender: FDA-Public Use
  Company Number: PHHY2013AR033186

PATIENT
  Age: 81 Year
  Sex: Male

DRUGS (2)
  1. GALVUS [Suspect]
     Indication: DIABETES MELLITUS MANAGEMENT
     Dosage: 50 MG, DAILY
     Route: 048
  2. DIOVAN D [Suspect]
     Indication: HYPERTENSION
     Dosage: 160/12.5 MG, DAILY
     Route: 048

REACTIONS (5)
  - Fall [Recovering/Resolving]
  - Hand fracture [Recovering/Resolving]
  - Local swelling [Unknown]
  - Joint swelling [Unknown]
  - Pain in extremity [Recovering/Resolving]
